FAERS Safety Report 14703757 (Version 9)
Quarter: 2018Q3

REPORT INFORMATION
  Report Type: Spontaneous
  Country: US (occurrence: US)
  Receive Date: 20180402
  Receipt Date: 20180720
  Transmission Date: 20181010
  Serious: No
  Sender: FDA-Public Use
  Company Number: US-PFIZER INC-2018118708

PATIENT
  Age: 65 Year
  Sex: Female
  Weight: 76 kg

DRUGS (9)
  1. LEVOTHYROXINE. [Concomitant]
     Active Substance: LEVOTHYROXINE
     Dosage: UNK
  2. METFORMIN [Concomitant]
     Active Substance: METFORMIN HYDROCHLORIDE
     Dosage: UNK
  3. DEXAMETHASONE. [Concomitant]
     Active Substance: DEXAMETHASONE
     Dosage: UNK
  4. DEXAMETHASONE. [Concomitant]
     Active Substance: DEXAMETHASONE
     Dosage: UNK, (1/2 TAB)
  5. GLIPIZIDE. [Concomitant]
     Active Substance: GLIPIZIDE
     Dosage: UNK
  6. SIMVASTATIN. [Concomitant]
     Active Substance: SIMVASTATIN
     Dosage: UNK
  7. GABAPENTIN. [Concomitant]
     Active Substance: GABAPENTIN
     Dosage: UNK
  8. SUTENT [Suspect]
     Active Substance: SUNITINIB MALATE
     Indication: RENAL CANCER STAGE IV
     Dosage: 50 MG, CYCLIC (2 WEEKS ON/1 WEEK OFF)
     Dates: start: 20180323
  9. KEPPRA [Concomitant]
     Active Substance: LEVETIRACETAM
     Dosage: UNK

REACTIONS (29)
  - Joint swelling [Unknown]
  - Dysphonia [Unknown]
  - Vomiting [Unknown]
  - Anorectal discomfort [Unknown]
  - Vision blurred [Unknown]
  - Nausea [Unknown]
  - Asthenia [Not Recovered/Not Resolved]
  - Vulvovaginal burning sensation [Unknown]
  - Oral discomfort [Unknown]
  - Dry mouth [Unknown]
  - Malaise [Unknown]
  - Aphonia [Recovered/Resolved]
  - Speech sound disorder [Unknown]
  - Fatigue [Not Recovered/Not Resolved]
  - Blood glucose increased [Unknown]
  - Decreased appetite [Unknown]
  - Burning sensation [Unknown]
  - Dehydration [Unknown]
  - Renal pain [Recovered/Resolved]
  - Oral mucosal blistering [Not Recovered/Not Resolved]
  - Pruritus [Unknown]
  - Mutism [Unknown]
  - Eye disorder [Unknown]
  - Hypertension [Unknown]
  - Ageusia [Unknown]
  - Hunger [Unknown]
  - Dysgeusia [Unknown]
  - Cough [Unknown]
  - Weight decreased [Unknown]

NARRATIVE: CASE EVENT DATE: 2018
